FAERS Safety Report 7890316 (Version 2)
Quarter: 2012Q4

REPORT INFORMATION
  Report Type: 
  Country: US (occurrence: US)
  Receive Date: 20110407
  Receipt Date: 20121018
  Transmission Date: 20130627
  Serious: No
  Sender: FDA-Public Use
  Company Number: US-B.I. PHARMACEUTICALS,INC./RIDGEFIELD-2011-BP-07923BP

PATIENT
  Age: 73 None
  Sex: Female

DRUGS (5)
  1. PRADAXA [Suspect]
     Indication: ATRIAL FIBRILLATION
     Dosage: 300 mg
     Route: 048
     Dates: start: 2010
  2. DIGOXIN [Concomitant]
     Indication: HYPERTENSION
     Dosage: 0.125 mg
     Route: 048
     Dates: start: 2006
  3. DYAZIDE [Concomitant]
     Indication: HYPERTENSION
     Route: 048
     Dates: start: 1996
  4. NORVASC [Concomitant]
     Indication: HYPERTENSION
     Dosage: 5 mg
     Route: 048
     Dates: start: 1991
  5. FENOFIBRATE [Concomitant]
     Indication: BLOOD CHOLESTEROL
     Dosage: 200 mg
     Route: 048
     Dates: start: 2010

REACTIONS (2)
  - Oesophageal pain [Recovered/Resolved]
  - Gastrooesophageal reflux disease [Not Recovered/Not Resolved]
